FAERS Safety Report 7227970-0 (Version None)
Quarter: 2011Q1

REPORT INFORMATION
  Report Type: 
  Country: None (occurrence: None)
  Receive Date: 20110112
  Receipt Date: 20110112
  Transmission Date: 20110831
  Serious: Yes (Hospitalization)
  Sender: FDA-Public Use
  Company Number: None

PATIENT
  Age: 33 Year
  Sex: Male
  Weight: 97.5234 kg

DRUGS (2)
  1. OMEPRAZOLE [Suspect]
     Indication: ABDOMINAL PAIN UPPER
     Dosage: 20 1 TIMES DAILY PO
     Route: 048
     Dates: start: 20100701, end: 20100730
  2. OMEPRAZOLE [Suspect]
     Indication: GASTRIC ULCER
     Dosage: 20 1 TIMES DAILY PO
     Route: 048
     Dates: start: 20100701, end: 20100730

REACTIONS (13)
  - ECONOMIC PROBLEM [None]
  - HYPERTENSION [None]
  - PAIN IN EXTREMITY [None]
  - PANIC REACTION [None]
  - IMPAIRED WORK ABILITY [None]
  - VERTIGO [None]
  - ANXIETY [None]
  - DIZZINESS [None]
  - DYSPNOEA [None]
  - PRESYNCOPE [None]
  - PAIN [None]
  - MALAISE [None]
  - MUSCULAR WEAKNESS [None]
